FAERS Safety Report 25401227 (Version 1)
Quarter: 2025Q2

REPORT INFORMATION
  Report Type: Report from Study
  Country: CN (occurrence: CN)
  Receive Date: 20250605
  Receipt Date: 20250605
  Transmission Date: 20250717
  Serious: Yes (Death)
  Sender: ROCHE
  Company Number: CN-ROCHE-10000303107

PATIENT
  Sex: Female
  Weight: 51.4 kg

DRUGS (44)
  1. RITUXIMAB [Suspect]
     Active Substance: RITUXIMAB
     Indication: Diffuse large B-cell lymphoma
     Dosage: SUBSEQUENT DOSE WERE TAKEN ON  01-JUN-2024
     Route: 042
     Dates: start: 20240130, end: 20240130
  2. POLATUZUMAB VEDOTIN [Suspect]
     Active Substance: POLATUZUMAB VEDOTIN
     Indication: Diffuse large B-cell lymphoma
     Dosage: SUBSEQUENT DOSES WERE TAKEN ON 02-JUN-2024
     Route: 042
     Dates: start: 20240131, end: 20240131
  3. CYCLOPHOSPHAMIDE [Suspect]
     Active Substance: CYCLOPHOSPHAMIDE
     Indication: Diffuse large B-cell lymphoma
     Dosage: SUBSEQUENT DOSES WERE TAKEN ON 02-JUN-2024
     Route: 042
     Dates: start: 20240131, end: 20240131
  4. PREDNISONE [Suspect]
     Active Substance: PREDNISONE
     Indication: Diffuse large B-cell lymphoma
     Route: 048
     Dates: start: 20240602, end: 20240606
  5. METHYLPREDNISOLONE [Suspect]
     Active Substance: METHYLPREDNISOLONE
     Indication: Diffuse large B-cell lymphoma
     Route: 042
     Dates: start: 20240131, end: 20240204
  6. DOXORUBICIN HYDROCHLORIDE [Suspect]
     Active Substance: DOXORUBICIN HYDROCHLORIDE
     Indication: Diffuse large B-cell lymphoma
     Route: 042
     Dates: start: 20240131, end: 20240131
  7. DOXORUBICIN HYDROCHLORIDE [Suspect]
     Active Substance: DOXORUBICIN HYDROCHLORIDE
     Indication: Diffuse large B-cell lymphoma
     Route: 042
     Dates: start: 20240602, end: 20240602
  8. RITUXIMAB [Suspect]
     Active Substance: RITUXIMAB
     Indication: Diffuse large B-cell lymphoma
     Route: 042
     Dates: start: 20240601, end: 20240601
  9. LEUCOGEN [Concomitant]
     Active Substance: LEUCOGEN
     Route: 048
     Dates: start: 20240130, end: 20250216
  10. Cefaclor  extended-release tablets [Concomitant]
     Route: 048
     Dates: start: 20240130, end: 20240212
  11. Entecavir tablets [Concomitant]
     Route: 048
     Dates: start: 20240127, end: 20240525
  12. Penciclovir cream [Concomitant]
     Dates: start: 20240131, end: 20240131
  13. Omeprazole enteric-coated capsules [Concomitant]
     Route: 048
     Dates: start: 20240224, end: 20240228
  14. Omeprazole enteric-coated capsules [Concomitant]
     Route: 048
     Dates: start: 20240322, end: 20240326
  15. Omeprazole enteric-coated capsules [Concomitant]
     Route: 048
     Dates: start: 20240420, end: 20240424
  16. Inject human immunoglobulin [Concomitant]
     Dates: start: 20240131
  17. METHYLPREDNISOLONE SODIUM SUCCINATE [Concomitant]
     Active Substance: METHYLPREDNISOLONE SODIUM SUCCINATE
     Dates: start: 20240127, end: 20240131
  18. SODIUM BICARBONATE [Concomitant]
     Active Substance: SODIUM BICARBONATE
     Dates: start: 20240127, end: 20240131
  19. SODIUM BICARBONATE [Concomitant]
     Active Substance: SODIUM BICARBONATE
     Dates: start: 20240322, end: 20240324
  20. SODIUM BICARBONATE [Concomitant]
     Active Substance: SODIUM BICARBONATE
     Dates: start: 20240419, end: 20240420
  21. Palonosetron Hydrochloride Capsules [Concomitant]
     Route: 048
     Dates: start: 20240130, end: 20240130
  22. Palonosetron Hydrochloride Capsules [Concomitant]
     Route: 048
     Dates: start: 20240321, end: 20240321
  23. Palonosetron Hydrochloride Capsules [Concomitant]
     Route: 048
     Dates: start: 20240418, end: 20240418
  24. GLYCOSAMINOGLYCANS [Concomitant]
     Active Substance: GLYCOSAMINOGLYCANS
     Dates: start: 20240131
  25. MUPIROCIN [Concomitant]
     Active Substance: MUPIROCIN
     Dates: start: 20240131
  26. PROMETHAZINE [Concomitant]
     Active Substance: PROMETHAZINE HYDROCHLORIDE
     Dates: start: 20240223, end: 20240224
  27. PROMETHAZINE [Concomitant]
     Active Substance: PROMETHAZINE HYDROCHLORIDE
     Route: 030
     Dates: start: 20240322, end: 20240324
  28. Compound acetaminophen [Concomitant]
     Route: 048
     Dates: start: 20240224, end: 20240224
  29. Compound acetaminophen [Concomitant]
     Route: 048
     Dates: start: 20240322, end: 20240324
  30. Pegylated recombinant human granulocyte stimulating factor injection [Concomitant]
     Route: 058
     Dates: start: 20240222, end: 20240223
  31. Pegylated recombinant human granulocyte stimulating factor injection [Concomitant]
     Route: 058
     Dates: start: 20240321, end: 20240321
  32. Pegylated recombinant human granulocyte stimulating factor injection [Concomitant]
     Route: 058
     Dates: start: 20240418, end: 20240418
  33. Acetylcysteine solution for inhalation [Concomitant]
     Route: 055
     Dates: start: 20240419, end: 20240523
  34. Acetylcysteine solution for inhalation [Concomitant]
     Route: 055
     Dates: start: 20240417, end: 20240420
  35. CEFTAZIDIME [Concomitant]
     Active Substance: CEFTAZIDIME
     Dates: start: 20240417, end: 20240420
  36. Ambroxol hydrochloride capsules [Concomitant]
     Route: 048
     Dates: start: 20240417, end: 20240420
  37. VITAMIN B6 [Concomitant]
     Active Substance: PYRIDOXINE HYDROCHLORIDE
     Dates: start: 20240131, end: 20240131
  38. VITAMIN B6 [Concomitant]
     Active Substance: PYRIDOXINE HYDROCHLORIDE
     Dates: start: 20240222, end: 20240223
  39. VITAMIN B6 [Concomitant]
     Active Substance: PYRIDOXINE HYDROCHLORIDE
     Dates: start: 20240322, end: 20240323
  40. VITAMIN B6 [Concomitant]
     Active Substance: PYRIDOXINE HYDROCHLORIDE
     Dates: start: 20240419, end: 20240420
  41. PREDNISONE ACETATE [Concomitant]
     Active Substance: PREDNISONE ACETATE
     Route: 048
     Dates: start: 20240224, end: 20240228
  42. PREDNISONE ACETATE [Concomitant]
     Active Substance: PREDNISONE ACETATE
     Route: 048
     Dates: start: 20240327, end: 20240327
  43. PREDNISONE ACETATE [Concomitant]
     Active Substance: PREDNISONE ACETATE
     Route: 048
     Dates: start: 20240322, end: 20240322
  44. PREDNISONE ACETATE [Concomitant]
     Active Substance: PREDNISONE ACETATE
     Route: 048
     Dates: start: 20240323, end: 20240326

REACTIONS (1)
  - Death [Fatal]
